FAERS Safety Report 13311704 (Version 1)
Quarter: 2017Q1

REPORT INFORMATION
  Report Type: Spontaneous
  Country: US (occurrence: US)
  Receive Date: 20170308
  Receipt Date: 20170308
  Transmission Date: 20170428
  Serious: No
  Sender: FDA-Public Use
  Company Number: None

PATIENT
  Age: 49 Year
  Sex: Female

DRUGS (12)
  1. FLUOXETINE [Concomitant]
     Active Substance: FLUOXETINE HYDROCHLORIDE
  2. PROMETRIUM [Concomitant]
     Active Substance: PROGESTERONE
  3. CLIMARA [Concomitant]
     Active Substance: ESTRADIOL
  4. OXYBUTYNIN [Concomitant]
     Active Substance: OXYBUTYNIN
  5. AMPYRA [Suspect]
     Active Substance: DALFAMPRIDINE
     Indication: MULTIPLE SCLEROSIS
     Route: 048
     Dates: start: 201006
  6. FLUCONAZOLE. [Concomitant]
     Active Substance: FLUCONAZOLE
  7. ACYCLOVIR. [Concomitant]
     Active Substance: ACYCLOVIR
  8. AMANTADINE [Concomitant]
     Active Substance: AMANTADINE
  9. PREDNISONE. [Concomitant]
     Active Substance: PREDNISONE
  10. OMEPRAZOLE. [Concomitant]
     Active Substance: OMEPRAZOLE
  11. GLATOPA [Concomitant]
     Active Substance: GLATIRAMER ACETATE
  12. ADDERALL XR [Concomitant]
     Active Substance: AMPHETAMINE ASPARTATE\AMPHETAMINE SULFATE\DEXTROAMPHETAMINE SACCHARATE\DEXTROAMPHETAMINE SULFATE

REACTIONS (2)
  - Urine analysis abnormal [None]
  - Back pain [None]

NARRATIVE: CASE EVENT DATE: 20170207
